FAERS Safety Report 21005283 (Version 1)
Quarter: 2022Q2

REPORT INFORMATION
  Report Type: Spontaneous
  Country: US (occurrence: US)
  Receive Date: 20220624
  Receipt Date: 20220624
  Transmission Date: 20220720
  Serious: Yes (Death, Other)
  Sender: FDA-Public Use
  Company Number: US-HQ SPECIALTY-US-2022INT000141

PATIENT

DRUGS (3)
  1. CISPLATIN [Suspect]
     Active Substance: CISPLATIN
     Indication: Transitional cell carcinoma
     Dosage: 70 MG/M2, DAY 1 EVERY 21 DAYS
     Route: 042
  2. GEMCITABINE [Suspect]
     Active Substance: GEMCITABINE
     Indication: Transitional cell carcinoma
     Dosage: 1000 MG/M2, DAY 1 AND 8
     Route: 042
  3. PLACEBO [Suspect]
     Active Substance: UNSPECIFIED INGREDIENT
     Indication: Transitional cell carcinoma
     Dosage: 15 MG/KG, DAY 1 EVERY 21 DAYS
     Route: 065

REACTIONS (1)
  - Death [Fatal]
